FAERS Safety Report 8807836 (Version 1)
Quarter: 2012Q4

REPORT INFORMATION
  Report Type: 
  Country: US (occurrence: US)
  Receive Date: 20120925
  Receipt Date: 20120925
  Transmission Date: 20130627
  Serious: Yes (Congenital Anomaly)
  Sender: FDA-Public Use
  Company Number: US-GLAXOSMITHKLINE-A0994813A

PATIENT
  Age: 0 Year
  Sex: Male
  Weight: 4.3 kg

DRUGS (3)
  1. PAXIL [Suspect]
     Indication: BIPOLAR DISORDER
     Dosage: 20MG Per day
     Route: 064
     Dates: start: 19961002
  2. TEGRETOL [Concomitant]
  3. LITHIUM [Concomitant]

REACTIONS (2)
  - Cardiac murmur [Unknown]
  - Foetal exposure during pregnancy [Unknown]
